FAERS Safety Report 4735737-8 (Version None)
Quarter: 2005Q3

REPORT INFORMATION
  Report Type: 
  Country: None (occurrence: None)
  Receive Date: 20050803
  Receipt Date: 20050711
  Transmission Date: 20060218
  Serious: Yes (Other)
  Sender: FDA-Public Use
  Company Number: USA0507102456

PATIENT
  Age: 70 Year
  Sex: Female

DRUGS (3)
  1. HUMULIN U [Suspect]
     Indication: DIABETES MELLITUS
     Dosage: 55 U/2 DAY
  2. HUMULIN R [Suspect]
     Indication: DIABETES MELLITUS
     Dosage: 55 U/2 DAY
  3. INSULIN [Suspect]
     Indication: DIABETES MELLITUS
     Dates: start: 19650101

REACTIONS (3)
  - ASTHMA [None]
  - BLOOD GLUCOSE FLUCTUATION [None]
  - MYOCARDIAL INFARCTION [None]
